APPROVED DRUG PRODUCT: CHLORTHALIDONE
Active Ingredient: CHLORTHALIDONE
Strength: 25MG
Dosage Form/Route: TABLET;ORAL
Application: A088902 | Product #001
Applicant: BARR LABORATORIES INC
Approved: Sep 19, 1985 | RLD: No | RS: No | Type: DISCN